FAERS Safety Report 9011276 (Version 2)
Quarter: 2013Q1

REPORT INFORMATION
  Report Type: Spontaneous
  Country: US (occurrence: US)
  Receive Date: 20130109
  Receipt Date: 20130201
  Transmission Date: 20140127
  Serious: No
  Sender: FDA-Public Use
  Company Number: US-PFIZER INC-2013008268

PATIENT
  Age: 80 Year
  Sex: Female
  Weight: 45.35 kg

DRUGS (4)
  1. LIPITOR [Suspect]
     Indication: BLOOD CHOLESTEROL INCREASED
     Dosage: 20 MG, 2X/DAY
     Route: 048
     Dates: end: 2012
  2. LIPITOR [Suspect]
     Dosage: 20MG FOUR TIMES A DAY
     Route: 048
     Dates: start: 2012
  3. HYDROCHLOROTHIAZIDE [Concomitant]
     Indication: HYPERTENSION
     Dosage: UNK
  4. DIAZEPAM [Concomitant]
     Dosage: UNK

REACTIONS (4)
  - Drug ineffective [Unknown]
  - Blood cholesterol abnormal [Unknown]
  - Low density lipoprotein abnormal [Unknown]
  - Inappropriate schedule of drug administration [Unknown]
